FAERS Safety Report 5793827-5 (Version None)
Quarter: 2008Q2

REPORT INFORMATION
  Report Type: 
  Country: None (occurrence: None)
  Receive Date: 20080627
  Receipt Date: 20080617
  Transmission Date: 20081010
  Serious: Yes (Other)
  Sender: FDA-Public Use
  Company Number: PT-PFIZER INC-2008051355

PATIENT
  Sex: Male

DRUGS (2)
  1. ZYVOX [Suspect]
     Route: 042
  2. DRUG, UNSPECIFIED [Concomitant]

REACTIONS (1)
  - HEPATIC FAILURE [None]
